FAERS Safety Report 5372122-2 (Version None)
Quarter: 2007Q2

REPORT INFORMATION
  Report Type: 
  Country: None (occurrence: None)
  Receive Date: 20070615
  Receipt Date: 20070327
  Transmission Date: 20071010
  Serious: Yes (Other)
  Sender: FDA-Public Use
  Company Number: 200620231US

PATIENT
  Age: 60 Year
  Sex: Male
  Weight: 136 kg

DRUGS (9)
  1. LANTUS [Suspect]
     Indication: DIABETES MELLITUS NON-INSULIN-DEPENDENT
     Dosage: 62 U HS
     Dates: start: 20061216, end: 20061220
  2. LANTUS [Suspect]
     Indication: DIABETES MELLITUS NON-INSULIN-DEPENDENT
     Dosage: 62 U HS
     Dates: start: 20061221
  3. LANTUS [Suspect]
     Indication: DIABETES MELLITUS NON-INSULIN-DEPENDENT
     Dosage: 60 U HS
  4. LANTUS [Suspect]
     Indication: DIABETES MELLITUS NON-INSULIN-DEPENDENT
     Dosage: 60 U QD
  5. METFORMIN HYDROCHLORIDE [Concomitant]
  6. GLUCOTROL [Concomitant]
  7. AVANDIA [Concomitant]
  8. LISINOPRIL [Concomitant]
  9. REGULAR INSULIN [Concomitant]

REACTIONS (3)
  - HYPERHIDROSIS [None]
  - HYPOGLYCAEMIA [None]
  - TREMOR [None]
